FAERS Safety Report 13232167 (Version 1)
Quarter: 2017Q1

REPORT INFORMATION
  Report Type: Report from Study
  Country: BR (occurrence: BR)
  Receive Date: 20170214
  Receipt Date: 20170214
  Transmission Date: 20170428
  Serious: Yes (Life-Threatening, Other)
  Sender: FDA-Public Use
  Company Number: PHHY2017BR023082

PATIENT
  Sex: Male
  Weight: 27 kg

DRUGS (3)
  1. EXJADE [Suspect]
     Active Substance: DEFERASIROX
     Indication: SICKLE CELL ANAEMIA
     Dosage: 500 MG, QD
     Route: 048
  2. EXJADE [Suspect]
     Active Substance: DEFERASIROX
     Dosage: 750 MG, QD
     Route: 048
  3. EXJADE [Suspect]
     Active Substance: DEFERASIROX
     Dosage: 1000 MG, QD
     Route: 048

REACTIONS (6)
  - Contusion [Unknown]
  - Swelling face [Recovering/Resolving]
  - Thrombosis [Unknown]
  - Photophobia [Unknown]
  - Coma [Unknown]
  - Sickle cell anaemia with crisis [Unknown]
